FAERS Safety Report 8156538-7 (Version None)
Quarter: 2012Q1

REPORT INFORMATION
  Report Type: 
  Country: None (occurrence: None)
  Receive Date: 20120222
  Receipt Date: 20120213
  Transmission Date: 20120608
  Serious: Yes (Other)
  Sender: FDA-Public Use
  Company Number: US-ACTELION-A-US2012-61265

PATIENT

DRUGS (3)
  1. TRACLEER [Suspect]
     Dosage: 62 MG, BID
     Route: 048
     Dates: start: 20060101
  2. SILDENAFIL [Concomitant]
  3. TRACLEER [Suspect]
     Indication: PULMONARY ARTERIAL HYPERTENSION
     Dosage: 125 MG, BID
     Route: 048
     Dates: end: 20120109

REACTIONS (1)
  - TREATMENT NONCOMPLIANCE [None]
